FAERS Safety Report 5936188-0 (Version None)
Quarter: 2008Q4

REPORT INFORMATION
  Report Type: 
  Country: None (occurrence: None)
  Receive Date: 20081030
  Receipt Date: 20081021
  Transmission Date: 20090506
  Serious: Yes (Death)
  Sender: FDA-Public Use
  Company Number: US-PFIZER INC-2008089549

PATIENT
  Sex: Female

DRUGS (1)
  1. CAMPTOSAR [Suspect]
     Dosage: DAILY DOSE:155MG-FREQ:ON DAY 1 AND 8 OF 21 DAY CYCLE

REACTIONS (1)
  - DEATH [None]
